FAERS Safety Report 16842742 (Version 1)
Quarter: 2019Q3

REPORT INFORMATION
  Report Type: Report from Study
  Country: None (occurrence: US)
  Receive Date: 20190924
  Receipt Date: 20190924
  Transmission Date: 20191005
  Serious: Yes (Other)
  Sender: FDA-Public Use
  Company Number: US-ABBVIE-19K-163-2932343-00

PATIENT
  Age: 42 Year
  Sex: Female

DRUGS (1)
  1. ORILISSA [Suspect]
     Active Substance: ELAGOLIX SODIUM
     Indication: PRODUCT USED FOR UNKNOWN INDICATION
     Route: 048

REACTIONS (6)
  - Discharge [Unknown]
  - Hiatus hernia [Unknown]
  - Headache [Not Recovered/Not Resolved]
  - Ovarian operation [Unknown]
  - Diabetes mellitus [Not Recovered/Not Resolved]
  - Ovarian operation [Unknown]

NARRATIVE: CASE EVENT DATE: 201902
